FAERS Safety Report 16896220 (Version 3)
Quarter: 2019Q4

REPORT INFORMATION
  Report Type: Spontaneous
  Country: US (occurrence: US)
  Receive Date: 20191008
  Receipt Date: 20191203
  Transmission Date: 20200122
  Serious: Yes (Other)
  Sender: FDA-Public Use
  Company Number: US-PFIZER INC-2019429000

PATIENT
  Age: 81 Year
  Sex: Female
  Weight: 46.71 kg

DRUGS (1)
  1. DICLOFENAC EPOLAMINE [Suspect]
     Active Substance: DICLOFENAC EPOLAMINE
     Indication: ARTHRITIS
     Dosage: 75 MG, 2X/DAY
     Route: 048

REACTIONS (1)
  - Gastrointestinal haemorrhage [Unknown]
